FAERS Safety Report 8125447-1 (Version None)
Quarter: 2012Q1

REPORT INFORMATION
  Report Type: 
  Country: None (occurrence: None)
  Receive Date: 20120209
  Receipt Date: 20120203
  Transmission Date: 20120608
  Serious: Yes (Death, Hospitalization)
  Sender: FDA-Public Use
  Company Number: DE-AMGEN-UK267720

PATIENT
  Age: 74 Year
  Sex: Female

DRUGS (1)
  1. DARBEPOETIN ALFA [Suspect]
     Indication: RENAL FAILURE CHRONIC
     Dosage: 20 MUG, Q2WK
     Route: 058
     Dates: start: 20070418

REACTIONS (1)
  - PANCREATIC CARCINOMA [None]
